FAERS Safety Report 8834002 (Version 1)
Quarter: 2012Q4

REPORT INFORMATION
  Report Type: Spontaneous
  Country: US (occurrence: None)
  Receive Date: 20121010
  Receipt Date: 20121010
  Transmission Date: 20130627
  Serious: Yes (Other)
  Sender: FDA-Public Use
  Company Number: None

PATIENT
  Age: 50 Year
  Sex: Male
  Weight: 137.2 kg

DRUGS (2)
  1. CALCIUM GLUCONATE [Suspect]
  2. POTASSIUM PHOSPHATE [Suspect]

REACTIONS (3)
  - Drug chemical incompatibility [None]
  - Device occlusion [None]
  - Wrong technique in drug usage process [None]
